FAERS Safety Report 19089333 (Version 2)
Quarter: 2021Q2

REPORT INFORMATION
  Report Type: Report from Study
  Country: KE (occurrence: KE)
  Receive Date: 20210403
  Receipt Date: 20210512
  Transmission Date: 20210717
  Serious: Yes (Hospitalization, Other)
  Sender: FDA-Public Use
  Company Number: KE-CIPLA LTD.-2021KE02500

PATIENT

DRUGS (4)
  1. ABACAVIR/LAMIVUDINE [Suspect]
     Active Substance: ABACAVIR\LAMIVUDINE
     Indication: HIV INFECTION WHO CLINICAL STAGE I
     Dosage: 1.5 DOSAGE FORM, BID (90MG/45MG BID)
     Route: 048
     Dates: start: 20170623, end: 20181106
  2. BACTRIM [Concomitant]
     Active Substance: SULFAMETHOXAZOLE\TRIMETHOPRIM
     Indication: PROPHYLAXIS
     Dosage: UNK
     Route: 065
     Dates: start: 20180623
  3. AMIKACIN. [Concomitant]
     Active Substance: AMIKACIN
     Indication: OTITIS MEDIA
     Dosage: 75 MILLIGRAM, BID
     Route: 042
     Dates: start: 20180820, end: 20180823
  4. LOPINAVIR/RITONAVIR [Suspect]
     Active Substance: LOPINAVIR\RITONAVIR
     Indication: HIV INFECTION WHO CLINICAL STAGE I
     Dosage: 3 DOSAGE FORM, BID (120MG/30MG TWICE DAILY)
     Route: 048
     Dates: start: 20170623, end: 20181106

REACTIONS (1)
  - Pneumonia [Recovered/Resolved]

NARRATIVE: CASE EVENT DATE: 20180814
